FAERS Safety Report 20729631 (Version 3)
Quarter: 2022Q2

REPORT INFORMATION
  Report Type: Spontaneous
  Country: JP (occurrence: JP)
  Receive Date: 20220420
  Receipt Date: 20220608
  Transmission Date: 20220721
  Serious: Yes (Other)
  Sender: FDA-Public Use
  Company Number: JP-BAYER-2022A054567

PATIENT
  Age: 79 Year
  Sex: Male

DRUGS (9)
  1. EYLEA [Suspect]
     Active Substance: AFLIBERCEPT
     Indication: Polypoidal choroidal vasculopathy
     Dosage: UNK, ONCE, SOLUTION FOR INJECTION
     Route: 031
  2. EYLEA [Suspect]
     Active Substance: AFLIBERCEPT
     Dosage: UNK, ONCE, SOLUTION FOR INJECTION
     Route: 031
  3. EYLEA [Suspect]
     Active Substance: AFLIBERCEPT
     Dosage: UNK, ONCE, SOLUTION FOR INJECTION
     Route: 031
  4. EYLEA [Suspect]
     Active Substance: AFLIBERCEPT
     Dosage: UNK, ONCE, SOLUTION FOR INJECTION
     Route: 031
  5. EYLEA [Suspect]
     Active Substance: AFLIBERCEPT
     Dosage: UNK, ONCE, SOLUTION FOR INJECTION
     Route: 031
  6. EYLEA [Suspect]
     Active Substance: AFLIBERCEPT
     Dosage: UNK, ONCE, SOLUTION FOR INJECTION
     Route: 031
  7. EYLEA [Suspect]
     Active Substance: AFLIBERCEPT
     Dosage: UNK, ONCE, SOLUTION FOR INJECTION
     Route: 031
  8. EYLEA [Suspect]
     Active Substance: AFLIBERCEPT
     Dosage: UNK, ONCE, SOLUTION FOR INJECTION
     Route: 031
  9. EYLEA [Suspect]
     Active Substance: AFLIBERCEPT
     Dosage: UNK, ONCE, SOLUTION FOR INJECTION
     Route: 031
     Dates: start: 20210330, end: 20210330

REACTIONS (4)
  - Serous retinal detachment [Unknown]
  - Detachment of retinal pigment epithelium [Unknown]
  - Therapeutic product effect incomplete [Unknown]
  - Fibrin abnormal [Unknown]

NARRATIVE: CASE EVENT DATE: 20210423
